FAERS Safety Report 16926524 (Version 3)
Quarter: 2020Q1

REPORT INFORMATION
  Report Type: Spontaneous
  Country: US (occurrence: US)
  Receive Date: 20191016
  Receipt Date: 20200318
  Transmission Date: 20200409
  Serious: No
  Sender: FDA-Public Use
  Company Number: US-SA-2019SA282415

PATIENT
  Age: 66 Year
  Sex: Female

DRUGS (1)
  1. KEVZARA [Suspect]
     Active Substance: SARILUMAB
     Dosage: 200 MG, QOW
     Route: 058
     Dates: start: 201908

REACTIONS (2)
  - Bronchitis [Unknown]
  - Alopecia [Unknown]

NARRATIVE: CASE EVENT DATE: 2019
